FAERS Safety Report 19561543 (Version 1)
Quarter: 2021Q3

REPORT INFORMATION
  Report Type: Spontaneous
  Country: US (occurrence: US)
  Receive Date: 20210715
  Receipt Date: 20210715
  Transmission Date: 20211014
  Serious: No
  Sender: FDA-Public Use
  Company Number: None

PATIENT
  Age: 55 Year
  Sex: Female
  Weight: 84.82 kg

DRUGS (22)
  1. ZOLMITRIPTAN. [Concomitant]
     Active Substance: ZOLMITRIPTAN
  2. ROSUVASTATIN CALCIUM. [Concomitant]
     Active Substance: ROSUVASTATIN CALCIUM
  3. AIMOVIG [Concomitant]
     Active Substance: ERENUMAB-AOOE
  4. IBUPROFEN. [Concomitant]
     Active Substance: IBUPROFEN
  5. GEMTESA [Suspect]
     Active Substance: VIBEGRON
     Dosage: ?          QUANTITY:1 DF DOSAGE FORM;?
     Route: 048
     Dates: start: 20210615, end: 20210708
  6. DOCUSATE CALCIUM. [Concomitant]
     Active Substance: DOCUSATE CALCIUM
  7. RESTASIS [Concomitant]
     Active Substance: CYCLOSPORINE
  8. ZOMIG [Concomitant]
     Active Substance: ZOLMITRIPTAN
  9. ESTRING [Concomitant]
     Active Substance: ESTRADIOL
  10. LORAZEPAM. [Concomitant]
     Active Substance: LORAZEPAM
  11. DOK [Concomitant]
     Active Substance: DOCUSATE SODIUM
  12. TROKENDI XR [Concomitant]
     Active Substance: TOPIRAMATE
  13. NAPROXEN. [Concomitant]
     Active Substance: NAPROXEN
  14. DOCUSATE SODIUM. [Concomitant]
     Active Substance: DOCUSATE SODIUM
  15. ESTRADIOL. [Concomitant]
     Active Substance: ESTRADIOL
  16. ASRRIN [Concomitant]
  17. HYDROXYCHLOROQUINE SULFATE. [Concomitant]
     Active Substance: HYDROXYCHLOROQUINE SULFATE
  18. PILOCARPINE HCL [Concomitant]
     Active Substance: PILOCARPINE HYDROCHLORIDE
  19. CYCLOBENZAPRINE HCL [Concomitant]
     Active Substance: CYCLOBENZAPRINE HYDROCHLORIDE
  20. DULOXETINE HCL [Concomitant]
     Active Substance: DULOXETINE HYDROCHLORIDE
  21. FAMOTIDINE. [Concomitant]
     Active Substance: FAMOTIDINE
  22. DEXILANT [Concomitant]
     Active Substance: DEXLANSOPRAZOLE

REACTIONS (3)
  - Hypertension [None]
  - Palpitations [None]
  - Anxiety [None]

NARRATIVE: CASE EVENT DATE: 20210708
